FAERS Safety Report 6641200-X (Version None)
Quarter: 2010Q1

REPORT INFORMATION
  Report Type: 
  Country: None (occurrence: None)
  Receive Date: 20100318
  Receipt Date: 20100310
  Transmission Date: 20100710
  Serious: Yes (Hospitalization)
  Sender: FDA-Public Use
  Company Number: PHHY2010DE15744

PATIENT
  Age: 64 Year
  Sex: Female

DRUGS (1)
  1. FEMARA [Suspect]
     Indication: BREAST CANCER
     Dosage: 2.5 MG/DAY
     Route: 048
     Dates: start: 20090901

REACTIONS (3)
  - BONE CYST EXCISION [None]
  - VAGINAL HAEMORRHAGE [None]
  - VULVOVAGINAL DRYNESS [None]
